FAERS Safety Report 8011378-4 (Version None)
Quarter: 2011Q4

REPORT INFORMATION
  Report Type: 
  Country: None (occurrence: None)
  Receive Date: 20111123
  Receipt Date: 20110808
  Transmission Date: 20120403
  Serious: No
  Sender: FDA-Public Use
  Company Number: 333261

PATIENT
  Age: 51 Year
  Sex: Male
  Weight: 122.0176 kg

DRUGS (3)
  1. PROCARDIA (NIFEDIPINE) ONGOING [Concomitant]
  2. DIOVAN (VALSARTAN) ONGOING [Concomitant]
  3. VICTOZA [Suspect]
     Indication: TYPE 2 DIABETES MELLITUS
     Dosage: 1.8 MG, QD, SUBCUTANEOUS
     Route: 058
     Dates: start: 20101108, end: 20110701

REACTIONS (1)
  - NEPHROLITHIASIS [None]
